FAERS Safety Report 23531303 (Version 1)
Quarter: 2024Q1

REPORT INFORMATION
  Report Type: Spontaneous
  Country: US (occurrence: US)
  Receive Date: 20240216
  Receipt Date: 20240216
  Transmission Date: 20240410
  Serious: No
  Sender: FDA-Public Use
  Company Number: US-CLOVIS ONCOLOGY-CLO-2022-001376

PATIENT
  Age: 70 Year
  Sex: Female

DRUGS (1)
  1. RUBRACA [Suspect]
     Active Substance: RUCAPARIB CAMSYLATE
     Indication: Ovarian cancer
     Dosage: 300 MG IN THE MORNING AND 600 MG IN THE EVENING
     Dates: start: 20200201, end: 2023

REACTIONS (3)
  - Post-acute COVID-19 syndrome [Unknown]
  - SARS-CoV-2 test positive [Unknown]
  - Immune system disorder [Unknown]

NARRATIVE: CASE EVENT DATE: 20221209
